FAERS Safety Report 6153885-5 (Version None)
Quarter: 2009Q2

REPORT INFORMATION
  Report Type: 
  Country: None (occurrence: None)
  Receive Date: 20090414
  Receipt Date: 20090407
  Transmission Date: 20091009
  Serious: Yes (Hospitalization)
  Sender: FDA-Public Use
  Company Number: FR-JNJFOC-20090202984

PATIENT
  Sex: Male
  Weight: 18.2 kg

DRUGS (2)
  1. RISPERDAL [Suspect]
     Route: 048
  2. RISPERDAL [Suspect]
     Indication: ABNORMAL BEHAVIOUR
     Route: 048

REACTIONS (8)
  - ACCIDENTAL OVERDOSE [None]
  - ASTHENIA [None]
  - EXTRAPYRAMIDAL DISORDER [None]
  - MALAISE [None]
  - PRODUCT QUALITY ISSUE [None]
  - SOMNOLENCE [None]
  - TACHYCARDIA [None]
  - TREMOR [None]
